FAERS Safety Report 25177476 (Version 1)
Quarter: 2025Q2

REPORT INFORMATION
  Report Type: Spontaneous
  Country: US (occurrence: US)
  Receive Date: 20250409
  Receipt Date: 20250409
  Transmission Date: 20250717
  Serious: No
  Sender: SANDOZ
  Company Number: US-SANDOZ-SDZ2025US021019

PATIENT
  Sex: Female

DRUGS (3)
  1. DORZOLAMIDE HYDROCHLORIDE [Suspect]
     Active Substance: DORZOLAMIDE HYDROCHLORIDE
     Indication: Glaucoma
     Route: 065
  2. TAFLUPROST [Suspect]
     Active Substance: TAFLUPROST
     Indication: Glaucoma
     Route: 065
  3. ZIOPTAN [Suspect]
     Active Substance: TAFLUPROST
     Indication: Glaucoma
     Route: 065

REACTIONS (4)
  - Intraocular pressure increased [Unknown]
  - Insurance issue [Unknown]
  - Product substitution issue [Unknown]
  - Drug ineffective [Unknown]
